FAERS Safety Report 9502425 (Version 2)
Quarter: 2015Q4

REPORT INFORMATION
  Report Type: Report from Study
  Country: US (occurrence: US)
  Receive Date: 20130906
  Receipt Date: 20151019
  Transmission Date: 20160305
  Serious: Yes (Other)
  Sender: FDA-Public Use
  Company Number: US-ROCHE-1270008

PATIENT
  Sex: Male

DRUGS (9)
  1. LUCENTIS [Suspect]
     Active Substance: RANIBIZUMAB
     Indication: DIABETIC RETINAL OEDEMA
     Dosage: RIGHT EYE
     Route: 050
  2. HUMALOG [Concomitant]
     Active Substance: INSULIN LISPRO
     Dosage: 70/30 STRENGTH
     Route: 065
  3. ASPIRIN. [Concomitant]
     Active Substance: ASPIRIN
     Route: 048
  4. VIGAMOX [Concomitant]
     Active Substance: MOXIFLOXACIN HYDROCHLORIDE
     Dosage: 1 GTT OD; 3 DAYS PRIOR ,DAY OF,AND 3 DAYS POST INJ
     Route: 065
  5. AVASTIN [Suspect]
     Active Substance: BEVACIZUMAB
     Indication: DIABETIC RETINOPATHY
  6. LUCENTIS [Suspect]
     Active Substance: RANIBIZUMAB
     Indication: CATARACT
  7. AVASTIN [Suspect]
     Active Substance: BEVACIZUMAB
     Indication: DIABETIC RETINAL OEDEMA
     Dosage: RIGHT EYE
     Route: 050
  8. AVASTIN [Suspect]
     Active Substance: BEVACIZUMAB
     Indication: CATARACT
  9. LUCENTIS [Suspect]
     Active Substance: RANIBIZUMAB
     Indication: DIABETIC RETINOPATHY
     Dosage: THEN QUARTERLY
     Route: 050

REACTIONS (3)
  - Cystoid macular oedema [Unknown]
  - Drug withdrawal syndrome [Unknown]
  - Intraocular pressure increased [Unknown]
